FAERS Safety Report 9858211 (Version 1)
Quarter: 2014Q1

REPORT INFORMATION
  Report Type: Spontaneous
  Country: US (occurrence: None)
  Receive Date: 20140130
  Receipt Date: 20140130
  Transmission Date: 20141002
  Serious: Yes (Other)
  Sender: FDA-Public Use
  Company Number: None

PATIENT
  Age: 43 Year
  Sex: Male
  Weight: 96.16 kg

DRUGS (4)
  1. BUPREN/NALOX (SUBOXINE) SUB 8-2 MG [Suspect]
     Indication: DRUG DEPENDENCE
     Dosage: 8-2 MG?30 ?ON SL DAILY?SL (UNDER TONGUE)??OCTOBER AND DECEMBER 2013?DECEMBER 2013
     Route: 060
     Dates: start: 201310, end: 201312
  2. TRAZODONE [Concomitant]
  3. CELEXA [Concomitant]
  4. SUBOXONE FILM [Concomitant]

REACTIONS (4)
  - Nausea [None]
  - Vomiting [None]
  - Rash [None]
  - Abdominal discomfort [None]
